FAERS Safety Report 7887853-X (Version None)
Quarter: 2011Q4

REPORT INFORMATION
  Report Type: 
  Country: None (occurrence: None)
  Receive Date: 20111103
  Receipt Date: 20111019
  Transmission Date: 20120403
  Serious: Yes (Death)
  Sender: FDA-Public Use
  Company Number: GB-TEVA-305775ISR

PATIENT
  Age: 49 Year
  Sex: Male

DRUGS (2)
  1. CLOZAPINE [Suspect]
     Route: 048
     Dates: start: 20101020, end: 20110731
  2. ZOPICLONE [Suspect]

REACTIONS (1)
  - TOXICITY TO VARIOUS AGENTS [None]
